FAERS Safety Report 23736337 (Version 1)
Quarter: 2024Q2

REPORT INFORMATION
  Report Type: Spontaneous
  Country: US (occurrence: None)
  Receive Date: 20240411
  Receipt Date: 20240411
  Transmission Date: 20240716
  Serious: No
  Sender: FDA-Public Use
  Company Number: None

PATIENT
  Sex: Male

DRUGS (3)
  1. MYCOPHENOLIC ACID [Suspect]
     Active Substance: MYCOPHENOLIC ACID
     Indication: Prophylaxis against transplant rejection
     Route: 048
     Dates: start: 20220119
  2. TACROLIMUS [Suspect]
     Active Substance: TACROLIMUS
  3. TACROLIMUS A [Concomitant]

REACTIONS (1)
  - Eye disorder [None]
